FAERS Safety Report 24446023 (Version 1)
Quarter: 2024Q4

REPORT INFORMATION
  Report Type: Spontaneous
  Country: US (occurrence: US)
  Receive Date: 20241016
  Receipt Date: 20241016
  Transmission Date: 20250115
  Serious: No
  Sender: SAPTALIS PHARMACEUTICALS LLC
  Company Number: US-Saptalis Pharmaceuticals LLC-2163171

PATIENT
  Sex: Female

DRUGS (1)
  1. ACETIC ACID [Suspect]
     Active Substance: ACETIC ACID

REACTIONS (2)
  - Ear discomfort [Unknown]
  - Memory impairment [Unknown]
